FAERS Safety Report 17516087 (Version 4)
Quarter: 2020Q2

REPORT INFORMATION
  Report Type: Report from Study
  Country: BR (occurrence: BR)
  Receive Date: 20200309
  Receipt Date: 20200608
  Transmission Date: 20200713
  Serious: Yes (Other)
  Sender: FDA-Public Use
  Company Number: BR-UCBSA-2020009140

PATIENT
  Age: 62 Year
  Sex: Female
  Weight: 58 kg

DRUGS (9)
  1. HETORI [Concomitant]
     Active Substance: ETORICOXIB
     Indication: RHEUMATOID ARTHRITIS
     Dosage: 1 TABLETS A DAY
     Route: 048
     Dates: start: 20200302, end: 20200305
  2. RESGAT [Concomitant]
     Indication: HYPERSENSITIVITY
     Dosage: 1X PER DAY
     Route: 061
     Dates: start: 20200217
  3. VITAMIN B [Concomitant]
     Active Substance: VITAMIN B
  4. DRENATAN [Concomitant]
     Active Substance: LATANOPROST
     Indication: GLAUCOMA
     Dosage: 1X PER DAY
     Route: 047
     Dates: start: 2014
  5. VITAMIN C [ASCORBIC ACID;SODIUM ASCORBATE] [Concomitant]
     Active Substance: ASCORBIC ACID\SODIUM ASCORBATE
  6. HETORI [Concomitant]
     Active Substance: ETORICOXIB
     Indication: PAIN
  7. TIMOLOL. [Concomitant]
     Active Substance: TIMOLOL
     Indication: GLAUCOMA
     Dosage: 2X PER DAY
     Route: 047
     Dates: start: 2014
  8. CERTOLIZUMAB PEGOL RA [Suspect]
     Active Substance: CERTOLIZUMAB PEGOL
     Indication: RHEUMATOID ARTHRITIS
     Dosage: 200 MILLIGRAM, EV 2 WEEKS(QOW)
     Route: 058
     Dates: start: 20191013
  9. CENTRUM JR [MINERALS NOS;VITAMINS NOS] [Concomitant]
     Indication: VITAMIN SUPPLEMENTATION
     Dosage: 1 DOSAGE FORM, ONCE DAILY (QD)
     Route: 048
     Dates: start: 20200401

REACTIONS (7)
  - Anxiety [Not Recovered/Not Resolved]
  - Rash pruritic [Recovered/Resolved]
  - Hypersensitivity [Not Recovered/Not Resolved]
  - Patient isolation [Unknown]
  - Rheumatoid arthritis [Recovered/Resolved]
  - Weight increased [Unknown]
  - Intentional dose omission [Unknown]

NARRATIVE: CASE EVENT DATE: 201910
